FAERS Safety Report 8185449-6 (Version None)
Quarter: 2012Q1

REPORT INFORMATION
  Report Type: 
  Country: None (occurrence: None)
  Receive Date: 20120305
  Receipt Date: 20120224
  Transmission Date: 20120608
  Serious: No
  Sender: FDA-Public Use
  Company Number: US-BAYER-2012-019342

PATIENT
  Sex: Male

DRUGS (1)
  1. STAXYN [Suspect]

REACTIONS (1)
  - NO ADVERSE EVENT [None]
